FAERS Safety Report 10574995 (Version 2)
Quarter: 2014Q4

REPORT INFORMATION
  Report Type: Spontaneous
  Country: FR (occurrence: FR)
  Receive Date: 20141111
  Receipt Date: 20141118
  Transmission Date: 20150529
  Serious: Yes (Hospitalization)
  Sender: FDA-Public Use
  Company Number: FR-AUROBINDO-AUR-APL-2014-11740

PATIENT
  Age: 77 Year
  Sex: Female

DRUGS (20)
  1. RISORDAN                           /07346501/ [Suspect]
     Active Substance: ISOSORBIDE DINITRATE
     Dosage: 6 MG/HR
     Route: 042
     Dates: start: 20140815
  2. VANCOMYCIN [Suspect]
     Active Substance: VANCOMYCIN
     Indication: STAPHYLOCOCCAL INFECTION
     Dosage: 125 MG, DAILY
     Route: 065
     Dates: start: 20140825, end: 20140913
  3. VANCOMYCIN [Suspect]
     Active Substance: VANCOMYCIN
     Indication: LUNG DISORDER
  4. BRICANYL [Suspect]
     Active Substance: TERBUTALINE SULFATE
     Indication: PRODUCT USED FOR UNKNOWN INDICATION
     Dosage: UNK
     Route: 055
     Dates: start: 201408, end: 201408
  5. RISORDAN                           /07346501/ [Suspect]
     Active Substance: ISOSORBIDE DINITRATE
     Indication: PRODUCT USED FOR UNKNOWN INDICATION
     Dosage: 144 MG, UNK
     Route: 042
     Dates: start: 20140815, end: 201409
  6. RISORDAN                           /07346501/ [Suspect]
     Active Substance: ISOSORBIDE DINITRATE
     Dosage: FOUR INTRAVENOUS BOLUS OF 1 MG
     Route: 040
     Dates: start: 20140815
  7. ALEPSAL [Concomitant]
     Active Substance: CAFFEINE\PHENOBARBITAL
     Indication: PRODUCT USED FOR UNKNOWN INDICATION
     Dosage: 100 MG, ONCE A DAY
     Route: 065
     Dates: start: 20140101, end: 20140920
  8. ATROVENT [Suspect]
     Active Substance: IPRATROPIUM BROMIDE
     Indication: PRODUCT USED FOR UNKNOWN INDICATION
     Dosage: UNK
     Route: 055
     Dates: start: 201408, end: 201408
  9. LASILIX                            /00032601/ [Concomitant]
     Active Substance: FUROSEMIDE
     Indication: PULMONARY OEDEMA
     Dosage: 40 MG, (1 TABLET) ONCE A DAY
     Route: 065
  10. CORDARONE [Concomitant]
     Active Substance: AMIODARONE HYDROCHLORIDE
     Indication: ATRIAL FIBRILLATION
     Dosage: 2 DF, TWO TIMES A DAY
     Route: 065
     Dates: start: 20140715
  11. LASILIX                            /00032601/ [Concomitant]
     Active Substance: FUROSEMIDE
     Dosage: 125 MG, ONCE A DAY
     Route: 065
  12. RAMIPRIL. [Suspect]
     Active Substance: RAMIPRIL
     Indication: PRODUCT USED FOR UNKNOWN INDICATION
     Dosage: UNK
     Route: 065
     Dates: start: 201408, end: 201408
  13. DIGOXINE [Suspect]
     Active Substance: DIGOXIN
     Indication: PRODUCT USED FOR UNKNOWN INDICATION
     Dosage: UNK
     Route: 065
     Dates: start: 201408, end: 201408
  14. GENTAMICIN SULFATE. [Suspect]
     Active Substance: GENTAMICIN SULFATE
     Indication: STAPHYLOCOCCAL INFECTION
     Dosage: UNK
     Route: 042
     Dates: start: 20140825, end: 20140913
  15. PREVISCAN                          /00789001/ [Concomitant]
     Active Substance: FLUINDIONE
     Indication: ATRIAL FIBRILLATION
     Dosage: 1.25 DF, ONCE A DAY
     Route: 065
     Dates: start: 201407, end: 20140915
  16. DOBUTAMINE HYDROCHLORIDE. [Suspect]
     Active Substance: DOBUTAMINE HYDROCHLORIDE
     Indication: PRODUCT USED FOR UNKNOWN INDICATION
     Dosage: 576000 ?G, UNK
     Route: 042
     Dates: start: 201408, end: 201408
  17. PREVISCAN                          /00789001/ [Concomitant]
     Active Substance: FLUINDIONE
     Dosage: UNK
     Route: 065
     Dates: start: 20140924
  18. TEGRETOL [Concomitant]
     Active Substance: CARBAMAZEPINE
     Indication: PRODUCT USED FOR UNKNOWN INDICATION
     Dosage: 1 DF, ONCE A DAY
     Route: 065
     Dates: start: 20140101, end: 20140920
  19. EUPRESSYL                          /00631801/ [Suspect]
     Active Substance: URAPIDIL
     Indication: HYPERTENSION
     Dosage: 144 MG, UNK
     Route: 042
     Dates: start: 20140815, end: 20140820
  20. GENTAMICIN SULFATE. [Suspect]
     Active Substance: GENTAMICIN SULFATE
     Indication: LUNG DISORDER

REACTIONS (3)
  - Drug reaction with eosinophilia and systemic symptoms [Recovered/Resolved]
  - Overdose [Unknown]
  - Acute kidney injury [Unknown]

NARRATIVE: CASE EVENT DATE: 20140907
